FAERS Safety Report 17153090 (Version 4)
Quarter: 2020Q2

REPORT INFORMATION
  Report Type: Report from Study
  Country: US (occurrence: US)
  Receive Date: 20191213
  Receipt Date: 20200429
  Transmission Date: 20200713
  Serious: Yes (Hospitalization, Other)
  Sender: FDA-Public Use
  Company Number: US-TAKEDA-2019TUS069410

PATIENT
  Age: 62 Year
  Sex: Female

DRUGS (1)
  1. IXAZOMIB [Suspect]
     Active Substance: IXAZOMIB
     Indication: PLASMA CELL MYELOMA
     Dosage: 3 MILLIGRAM
     Route: 048

REACTIONS (7)
  - Liver injury [Recovering/Resolving]
  - Rib fracture [Recovering/Resolving]
  - Neoplasm malignant [Recovering/Resolving]
  - Product dose omission [Unknown]
  - Road traffic accident [Recovering/Resolving]
  - Pneumothorax [Recovering/Resolving]
  - Nasopharyngitis [Unknown]

NARRATIVE: CASE EVENT DATE: 20200311
